FAERS Safety Report 9844345 (Version 2)
Quarter: 2014Q1

REPORT INFORMATION
  Report Type: Report from Study
  Country: SG (occurrence: SG)
  Receive Date: 20140127
  Receipt Date: 20140127
  Transmission Date: 20141002
  Serious: Yes (Death)
  Sender: FDA-Public Use
  Company Number: PHHY2011SG95286

PATIENT
  Age: 57 Year
  Sex: Male

DRUGS (5)
  1. GLIVEC [Suspect]
     Indication: CHRONIC MYELOID LEUKAEMIA
     Dosage: 400 MG, DAILY
     Dates: start: 20100211
  2. EPREX [Concomitant]
     Dosage: 8000 U
     Route: 058
  3. AMLODIPINE [Concomitant]
     Dosage: 20 MG, OM ON NON-DIALYSIS DAYS
     Route: 048
  4. AMLODIPINE [Concomitant]
     Dosage: 5 MG, OM ON DIALYSIS DAYS
     Route: 048
  5. FERROUS FUMARATE [Concomitant]
     Dosage: 400 MG BD
     Route: 048

REACTIONS (5)
  - Renal failure chronic [Fatal]
  - Chronic myeloid leukaemia [Fatal]
  - Ocular hyperaemia [Not Recovered/Not Resolved]
  - Eye irritation [Not Recovered/Not Resolved]
  - Dry eye [Not Recovered/Not Resolved]
